FAERS Safety Report 5483222-0 (Version None)
Quarter: 2007Q4

REPORT INFORMATION
  Report Type: 
  Country: None (occurrence: None)
  Receive Date: 20071009
  Receipt Date: 20070924
  Transmission Date: 20080405
  Serious: Yes (Other)
  Sender: FDA-Public Use
  Company Number: 2007001772

PATIENT

DRUGS (2)
  1. TARCEVA [Suspect]
     Indication: NEOPLASM
     Dosage: ORAL
     Route: 048
  2. SORAFENIB [Suspect]
     Indication: NEOPLASM
     Dosage: ORAL
     Route: 048

REACTIONS (1)
  - HYPOKALAEMIA [None]
